FAERS Safety Report 12228356 (Version 2)
Quarter: 2016Q2

REPORT INFORMATION
  Report Type: Spontaneous
  Country: US (occurrence: US)
  Receive Date: 20160401
  Receipt Date: 20160424
  Transmission Date: 20160815
  Serious: No
  Sender: FDA-Public Use
  Company Number: US-BRISTOL-MYERS SQUIBB COMPANY-BMS-2016-023519

PATIENT
  Age: 65 Year
  Sex: Female
  Weight: 49 kg

DRUGS (1)
  1. KENALOG-40 [Suspect]
     Active Substance: TRIAMCINOLONE ACETONIDE
     Indication: ARTHRALGIA
     Dosage: 80 MG, UNK
     Route: 014
     Dates: start: 20160324

REACTIONS (2)
  - Poor quality drug administered [Unknown]
  - Product quality issue [Unknown]

NARRATIVE: CASE EVENT DATE: 20160324
